FAERS Safety Report 8291859-9 (Version None)
Quarter: 2012Q2

REPORT INFORMATION
  Report Type: 
  Country: None (occurrence: None)
  Receive Date: 20120417
  Receipt Date: 20120409
  Transmission Date: 20120825
  Serious: Yes (Hospitalization)
  Sender: FDA-Public Use
  Company Number: US-ELI_LILLY_AND_COMPANY-US201204003202

PATIENT
  Sex: Female

DRUGS (17)
  1. TOPIROL [Concomitant]
     Dosage: 50 MG, UNK
  2. ASPIRIN                                 /SCH/ [Concomitant]
     Dosage: 81 MG, UNK
  3. MULTI-VITAMIN [Concomitant]
  4. LEXAPRO [Concomitant]
  5. CALCIUM CARBONATE [Concomitant]
  6. FOLIC ACID [Concomitant]
     Dosage: 400 MG, UNK
  7. SANCTURA [Concomitant]
  8. METHOTREXATE [Concomitant]
     Dosage: 2.5 MG, UNK
  9. MONOPRIL [Concomitant]
  10. INDOR [Concomitant]
     Dosage: 30 MG, UNK
  11. ISOSORBIDE MONONITRATE [Concomitant]
  12. LOSARTAN                           /01121602/ [Concomitant]
     Dosage: 50 MG, UNK
  13. FORTEO [Suspect]
     Indication: OSTEOPOROSIS
     Dosage: 20 UG, QD
     Dates: start: 20110101
  14. LIPITOR [Concomitant]
     Dosage: 10 MG, UNK
  15. VITAMIN D [Concomitant]
  16. MIRALAX [Concomitant]
  17. MUCINEX [Concomitant]

REACTIONS (4)
  - GAIT DISTURBANCE [None]
  - ILL-DEFINED DISORDER [None]
  - URINARY TRACT INFECTION [None]
  - LUNG INFECTION [None]
